FAERS Safety Report 4997138-7 (Version None)
Quarter: 2006Q2

REPORT INFORMATION
  Report Type: 
  Country: None (occurrence: None)
  Receive Date: 20060509
  Receipt Date: 20060323
  Transmission Date: 20061013
  Serious: Yes (Hospitalization)
  Sender: FDA-Public Use
  Company Number: GB-NOVOPROD-251838

PATIENT
  Sex: Female
  Weight: 64 kg

DRUGS (9)
  1. NOVOSEVEN [Suspect]
     Indication: OPERATIVE HAEMORRHAGE
     Dosage: 4.8 MG, QD
     Dates: start: 20060125, end: 20060125
  2. PLATELETS [Concomitant]
  3. APROTININ [Concomitant]
  4. FRESH FROZEN PLASMA [Concomitant]
  5. ASPIRIN [Concomitant]
     Dosage: 75 MG, QD
  6. SIMVASTATIN [Concomitant]
     Dosage: 40 MG, QD
  7. LANSOPRAZOLE [Concomitant]
     Dosage: 30 MG, QD
  8. BISOPROLOL [Concomitant]
     Dosage: 2.5 MG, QD
  9. DIPYRIDAMOLE [Concomitant]
     Dosage: 100 MG, TID

REACTIONS (8)
  - ABDOMINAL DISTENSION [None]
  - CARDIAC DISORDER [None]
  - GASTROINTESTINAL DISORDER [None]
  - INTESTINAL PERFORATION [None]
  - LARGE INTESTINE PERFORATION [None]
  - MULTI-ORGAN FAILURE [None]
  - SEPSIS [None]
  - SUBCLAVIAN VEIN THROMBOSIS [None]
